FAERS Safety Report 5073861-3 (Version None)
Quarter: 2006Q3

REPORT INFORMATION
  Report Type: 
  Country: None (occurrence: None)
  Receive Date: 20060808
  Receipt Date: 20060804
  Transmission Date: 20061208
  Serious: Yes (Other)
  Sender: FDA-Public Use
  Company Number: CHPA2006US07137

PATIENT
  Age: 49 Year
  Sex: Female
  Weight: 50.9 kg

DRUGS (6)
  1. TUMS [Suspect]
     Indication: STOMACH DISCOMFORT
     Dosage: 2U UNKNOWN
     Route: 065
     Dates: start: 20060723
  2. MAALOX FAST BLOCKER [Suspect]
     Indication: STOMACH DISCOMFORT
     Route: 048
     Dates: start: 20060501, end: 20060719
  3. SYNTHROID [Concomitant]
  4. CALCIUM GLUCONATE [Concomitant]
  5. PRILOSEC [Concomitant]
  6. ZANTAC [Concomitant]

REACTIONS (6)
  - CONDITION AGGRAVATED [None]
  - DYSPNOEA [None]
  - ERYTHEMA [None]
  - PAIN [None]
  - STOMACH DISCOMFORT [None]
  - THROAT TIGHTNESS [None]
